FAERS Safety Report 26049270 (Version 1)
Quarter: 2025Q4

REPORT INFORMATION
  Report Type: Spontaneous
  Country: US (occurrence: US)
  Receive Date: 20251115
  Receipt Date: 20251115
  Transmission Date: 20260117
  Serious: Yes (Other)
  Sender: MACLEODS
  Company Number: US-MACLEODS PHARMA-MAC2025056331

PATIENT

DRUGS (5)
  1. LIDOCAINE [Suspect]
     Active Substance: LIDOCAINE
     Indication: Local anaesthesia
     Dosage: BOLUS 90 MG (1 MG/KG)
     Route: 065
  2. LIDOCAINE [Suspect]
     Active Substance: LIDOCAINE
     Dosage: CONTINUOUS INFUSION AT 4 MG/MIN,
     Route: 065
  3. LIDOCAINE [Suspect]
     Active Substance: LIDOCAINE
     Dosage: 2 MG/MIN AFTER 30 MINUTES.  LDC 2,910  MG (121.25  MG/HR)
     Route: 042
  4. MEXILETINE [Concomitant]
     Active Substance: MEXILETINE
     Dosage: 150 MG EVERY 8 HOURS
     Route: 065
  5. VITAMIN K [Concomitant]
     Active Substance: PHYTONADIONE
     Indication: Product used for unknown indication
     Route: 065

REACTIONS (6)
  - Local anaesthetic systemic toxicity [Unknown]
  - Mental status changes [Recovering/Resolving]
  - Dysarthria [Recovering/Resolving]
  - Confusional state [Recovering/Resolving]
  - Tremor [Recovering/Resolving]
  - Overdose [Unknown]
